FAERS Safety Report 10172303 (Version 2)
Quarter: 2014Q2

REPORT INFORMATION
  Report Type: Spontaneous
  Country: CZ (occurrence: CZ)
  Receive Date: 20140515
  Receipt Date: 20140604
  Transmission Date: 20141212
  Serious: Yes (Hospitalization)
  Sender: FDA-Public Use
  Company Number: CZ-ROCHE-1397233

PATIENT
  Age: 65 Year
  Sex: Male

DRUGS (5)
  1. HERCEPTIN [Suspect]
     Indication: ADENOCARCINOMA GASTRIC
     Route: 042
     Dates: start: 20120216, end: 20131008
  2. HERCEPTIN [Suspect]
     Dosage: LOADING DOSE 600 MG ON 24-JAN-2014.
     Route: 042
     Dates: start: 20140124, end: 20140307
  3. XELODA [Suspect]
     Indication: ADENOCARCINOMA GASTRIC
     Route: 048
     Dates: start: 20111214, end: 20120710
  4. CISPLATIN [Suspect]
     Indication: ADENOCARCINOMA GASTRIC
     Route: 065
     Dates: start: 20111214, end: 20120710
  5. EPIRUBICIN [Suspect]
     Indication: ADENOCARCINOMA GASTRIC
     Route: 065
     Dates: start: 20111214, end: 20120124

REACTIONS (4)
  - Granulomatous pneumonitis [Not Recovered/Not Resolved]
  - Palmar-plantar erythrodysaesthesia syndrome [Unknown]
  - Anaemia [Unknown]
  - Thrombocytopenia [Unknown]
